FAERS Safety Report 10037093 (Version 1)
Quarter: 2014Q1

REPORT INFORMATION
  Report Type: Spontaneous
  Country: US (occurrence: None)
  Receive Date: 20140324
  Receipt Date: 20140324
  Transmission Date: 20141002
  Serious: Yes (Other)
  Sender: FDA-Public Use
  Company Number: DE-ALSI-201400041

PATIENT
  Age: 6 Year
  Sex: Male

DRUGS (2)
  1. NITROUS OXIDE [Suspect]
     Indication: ANALGESIC THERAPY
     Route: 055
  2. SAUERSTOFF [Suspect]
     Indication: ANALGESIC THERAPY
     Route: 055

REACTIONS (2)
  - Screaming [None]
  - Aggression [None]
